FAERS Safety Report 19511464 (Version 7)
Quarter: 2021Q4

REPORT INFORMATION
  Report Type: Report from Study
  Country: US (occurrence: US)
  Receive Date: 20210709
  Receipt Date: 20211123
  Transmission Date: 20220303
  Serious: Yes (Hospitalization)
  Sender: FDA-Public Use
  Company Number: US-GLOBAL BLOOD THERAPEUTICS INC-US-GBT-21-02268

PATIENT
  Age: 25 Year
  Sex: Female
  Weight: 47.2 kg

DRUGS (11)
  1. OXBRYTA [Suspect]
     Active Substance: VOXELOTOR
     Indication: Sickle cell disease
     Dates: start: 20200302
  2. OXBRYTA [Suspect]
     Active Substance: VOXELOTOR
     Dates: start: 20200430
  3. ALBUTEROL SULFATE [Concomitant]
     Active Substance: ALBUTEROL SULFATE
     Indication: Wheezing
     Dosage: 2 PUFFS
     Route: 055
     Dates: start: 20180614
  4. DIPHENHYDRAMINE (BENADRYL) 25 MG [Concomitant]
     Indication: Pruritus
     Route: 048
     Dates: start: 20150629
  5. FOLIC ACID [Concomitant]
     Active Substance: FOLIC ACID
     Indication: Sickle cell disease
     Route: 048
     Dates: start: 20190125
  6. HYDROXYUREA [Concomitant]
     Active Substance: HYDROXYUREA
     Indication: Sickle cell disease
     Route: 048
     Dates: start: 20180628
  7. LIDOCAINE\PRILOCAINE [Concomitant]
     Active Substance: LIDOCAINE\PRILOCAINE
     Indication: Hypoaesthesia
     Dosage: 30-60 MINUTES BEFORE PROC
     Route: 061
     Dates: start: 20181025
  8. ROXICODONE [Concomitant]
     Active Substance: OXYCODONE HYDROCHLORIDE
     Indication: Pain
     Route: 048
     Dates: start: 20180621
  9. LORATADINE (CLARITIN) [Concomitant]
     Indication: Seasonal allergy
     Route: 048
     Dates: start: 20180614
  10. ONDASETRON ODT (ZOFRAN-ODT) [Concomitant]
     Indication: Nausea
     Route: 048
     Dates: start: 20191017
  11. ONDASETRON ODT (ZOFRAN-ODT) [Concomitant]
     Indication: Vomiting

REACTIONS (1)
  - Pleuritic pain [Recovered/Resolved]

NARRATIVE: CASE EVENT DATE: 20200501
